FAERS Safety Report 7074786-4 (Version None)
Quarter: 2010Q4

REPORT INFORMATION
  Report Type: 
  Country: None (occurrence: None)
  Receive Date: 20101029
  Receipt Date: 20101011
  Transmission Date: 20110411
  Serious: Yes (Other)
  Sender: FDA-Public Use
  Company Number: NL-AMGEN-NLDCT2010000151

PATIENT

DRUGS (1)
  1. ETANERCEPT [Suspect]
     Indication: PSORIASIS
     Dosage: 25 OR 50 MG, UNK UNK, 2 TIMES/WK
     Route: 058

REACTIONS (1)
  - SQUAMOUS CELL CARCINOMA [None]
